FAERS Safety Report 25280693 (Version 1)
Quarter: 2025Q2

REPORT INFORMATION
  Report Type: Spontaneous
  Country: US (occurrence: US)
  Receive Date: 20250508
  Receipt Date: 20250508
  Transmission Date: 20250717
  Serious: No
  Sender: ELI LILLY AND COMPANY
  Company Number: US-ELI_LILLY_AND_COMPANY-US202504020029

PATIENT
  Sex: Female

DRUGS (3)
  1. KISUNLA [Suspect]
     Active Substance: DONANEMAB-AZBT
     Indication: Cognitive disorder
     Route: 065
     Dates: start: 20250407
  2. KISUNLA [Suspect]
     Active Substance: DONANEMAB-AZBT
     Indication: Dementia Alzheimer^s type
  3. OZEMPIC [Concomitant]
     Active Substance: SEMAGLUTIDE
     Indication: Product used for unknown indication
     Route: 065

REACTIONS (5)
  - Gastrointestinal disorder [Not Recovered/Not Resolved]
  - Diarrhoea [Not Recovered/Not Resolved]
  - Nausea [Not Recovered/Not Resolved]
  - Nausea [Not Recovered/Not Resolved]
  - Headache [Not Recovered/Not Resolved]

NARRATIVE: CASE EVENT DATE: 20250407
